FAERS Safety Report 13416747 (Version 2)
Quarter: 2017Q2

REPORT INFORMATION
  Report Type: Spontaneous
  Country: US (occurrence: US)
  Receive Date: 20170407
  Receipt Date: 20170413
  Transmission Date: 20170830
  Serious: Yes (Death, Hospitalization)
  Sender: FDA-Public Use
  Company Number: US-BAXALTA-2017BLT002744

PATIENT
  Age: 19 Year
  Sex: Female

DRUGS (3)
  1. CEPROTIN [Suspect]
     Active Substance: PROTEIN C
     Indication: DISSEMINATED INTRAVASCULAR COAGULATION
  2. CEPROTIN [Suspect]
     Active Substance: PROTEIN C
     Indication: SEPTIC SHOCK
     Dosage: 3750 U, EVERY 6 HOURS
     Route: 042
  3. CEPROTIN [Suspect]
     Active Substance: PROTEIN C
     Indication: PURPURA FULMINANS
     Dosage: 7500 U, ONCE
     Route: 042

REACTIONS (2)
  - Death [Fatal]
  - Cardiac arrest [Unknown]

NARRATIVE: CASE EVENT DATE: 20170330
